FAERS Safety Report 10330735 (Version 1)
Quarter: 2014Q3

REPORT INFORMATION
  Report Type: Spontaneous
  Country: US (occurrence: None)
  Receive Date: 20140718
  Receipt Date: 20140718
  Transmission Date: 20150326
  Serious: Yes (Life-Threatening, Hospitalization)
  Sender: FDA-Public Use
  Company Number: None

PATIENT
  Age: 62 Year
  Sex: Male

DRUGS (1)
  1. VIAGRA [Suspect]
     Active Substance: SILDENAFIL CITRATE
     Indication: ERECTILE DYSFUNCTION
     Dosage: 1 PILL, AS NEEDED, TAKEN BY MOUTH
     Route: 048
     Dates: start: 20140713

REACTIONS (3)
  - Loss of consciousness [None]
  - Blood pressure decreased [None]
  - Dehydration [None]

NARRATIVE: CASE EVENT DATE: 20140713
